FAERS Safety Report 8624354-5 (Version None)
Quarter: 2012Q3

REPORT INFORMATION
  Report Type: 
  Country: None (occurrence: None)
  Receive Date: 20120827
  Receipt Date: 20120823
  Transmission Date: 20120928
  Serious: Yes (Hospitalization)
  Sender: FDA-Public Use
  Company Number: US-ACTELION-A-US2012-70521

PATIENT
  Age: 47 Year
  Sex: Male

DRUGS (3)
  1. TRACLEER [Suspect]
     Indication: PULMONARY ARTERIAL HYPERTENSION
     Route: 048
  2. LOVENOX [Concomitant]
  3. SILDENAFIL [Concomitant]

REACTIONS (2)
  - PARALYSIS [None]
  - CEREBROVASCULAR ACCIDENT [None]
